FAERS Safety Report 9173478 (Version 1)
Quarter: 2013Q1

REPORT INFORMATION
  Report Type: Spontaneous
  Country: US (occurrence: US)
  Receive Date: 20130320
  Receipt Date: 20130320
  Transmission Date: 20140127
  Serious: No
  Sender: FDA-Public Use
  Company Number: US-TEVA-392728USA

PATIENT
  Sex: Female
  Weight: 81.72 kg

DRUGS (1)
  1. QNASL [Suspect]
     Dosage: 2 SPRAYS
     Route: 055
     Dates: start: 20130313

REACTIONS (4)
  - Dizziness [Unknown]
  - Hypoaesthesia [Unknown]
  - Neck pain [Unknown]
  - Nausea [Unknown]
